FAERS Safety Report 7433890-9 (Version None)
Quarter: 2011Q2

REPORT INFORMATION
  Report Type: 
  Country: None (occurrence: None)
  Receive Date: 20110420
  Receipt Date: 20110420
  Transmission Date: 20111010
  Serious: Yes (Other)
  Sender: FDA-Public Use
  Company Number: None

PATIENT
  Age: 55 Year
  Sex: Male
  Weight: 72.5755 kg

DRUGS (1)
  1. ALLI [Suspect]
     Dosage: 1 PILL 2 DAILY PO
     Route: 048
     Dates: start: 20070303, end: 20110404

REACTIONS (1)
  - NEPHROLITHIASIS [None]
